FAERS Safety Report 18270605 (Version 1)
Quarter: 2020Q3

REPORT INFORMATION
  Report Type: Report from Study
  Country: KR (occurrence: KR)
  Receive Date: 20200915
  Receipt Date: 20200915
  Transmission Date: 20201103
  Serious: Yes (Death, Hospitalization, Other)
  Sender: FDA-Public Use
  Company Number: KR-JNJFOC-A-CH2020-203638

PATIENT
  Age: 66 Year
  Sex: Female
  Weight: 42.7 kg

DRUGS (46)
  1. UPTRAVI [Concomitant]
     Active Substance: SELEXIPAG
     Dosage: 200 MCG, QD
     Route: 048
     Dates: start: 20200324, end: 20200415
  2. RHINATHIOL [Concomitant]
     Dosage: 1500 MG, QD
     Route: 048
     Dates: start: 20170522
  3. ZEMIGLO [Concomitant]
     Dosage: 50 MG, QD
     Route: 048
     Dates: start: 20200320, end: 20200609
  4. PHAZYME [Concomitant]
     Active Substance: DIMETHICONE 410
     Dosage: 3 DF, QD
     Route: 048
     Dates: start: 20200322, end: 20200322
  5. REMODULIN [Concomitant]
     Active Substance: TREPROSTINIL
     Dosage: 2.0 NG/KG, PER MIN
     Route: 058
     Dates: start: 20200415, end: 20200415
  6. CORDARONE [Concomitant]
     Active Substance: AMIODARONE HYDROCHLORIDE
     Dosage: 200 MG, QD
     Route: 048
     Dates: start: 20200415, end: 20200418
  7. DICHLOZID [Concomitant]
     Dosage: 0.5 MG, QD
     Route: 048
     Dates: start: 20200418, end: 20200418
  8. CALCIUM GLUCONATE. [Concomitant]
     Active Substance: CALCIUM GLUCONATE
     Indication: PROPHYLAXIS
     Dosage: 20 ML, QD
     Route: 042
     Dates: start: 20200526, end: 20200526
  9. KALIMATE [Concomitant]
     Active Substance: CALCIUM POLYSTYRENE SULFONATE
  10. PAHTENSION [Concomitant]
     Active Substance: SILDENAFIL CITRATE
     Indication: HEART DISEASE CONGENITAL
  11. LASIX [Concomitant]
     Active Substance: FUROSEMIDE
     Dosage: 20 MG, QD
     Route: 048
     Dates: start: 20200325, end: 20200329
  12. ALDACTONE [Concomitant]
     Active Substance: SPIRONOLACTONE
     Dosage: 25 MG, QD
     Route: 048
     Dates: start: 20200316, end: 20200324
  13. FEBURIC [Concomitant]
     Active Substance: FEBUXOSTAT
     Dosage: 20 MG, QD
     Route: 048
     Dates: start: 20200313, end: 20200609
  14. K?CONTIN CONTINUS [Concomitant]
     Dosage: 1200 MG, QD
     Route: 048
     Dates: start: 20200322, end: 20200322
  15. COLCHICINE. [Concomitant]
     Active Substance: COLCHICINE
     Dosage: 2 DF, QD
     Route: 048
     Dates: start: 20200428, end: 20200609
  16. CORDARONE [Concomitant]
     Active Substance: AMIODARONE HYDROCHLORIDE
     Dosage: 400 MG, QD
     Route: 048
     Dates: start: 20200414, end: 20200414
  17. VENTOLIN NEBULAS [Concomitant]
     Active Substance: ALBUTEROL SULFATE
     Dosage: UNK
     Route: 055
     Dates: start: 20200424, end: 20200427
  18. OPSUMIT [Suspect]
     Active Substance: MACITENTAN
     Indication: PULMONARY ARTERIAL HYPERTENSION
     Dosage: 10 MG, QD
     Route: 048
     Dates: start: 20200316, end: 20200609
  19. LASIX [Concomitant]
     Active Substance: FUROSEMIDE
     Dosage: 3 DF, QD
     Route: 048
     Dates: start: 20200316, end: 20200318
  20. ALDACTONE [Concomitant]
     Active Substance: SPIRONOLACTONE
     Dosage: 50 MG, QD
     Route: 048
     Dates: start: 20200416, end: 20200421
  21. MAGO [Concomitant]
     Indication: PROPHYLAXIS
     Dosage: 500 MG, QD
     Route: 048
     Dates: start: 20200316, end: 20200609
  22. DIABEX [Concomitant]
     Active Substance: METFORMIN HYDROCHLORIDE
     Dosage: 500 MG, QD
     Route: 048
     Dates: start: 20200320, end: 20200609
  23. FAMOTIDINE. [Concomitant]
     Active Substance: FAMOTIDINE
     Dosage: 2 DF, QD
     Route: 048
     Dates: start: 20200324, end: 20200324
  24. REMODULIN [Concomitant]
     Active Substance: TREPROSTINIL
     Dosage: 4.0 NG/KG, PER MIN
     Route: 058
     Dates: start: 20200416, end: 20200416
  25. DOPAMIX [Concomitant]
     Dosage: 5.0 CC
     Route: 042
     Dates: start: 20200328, end: 20200328
  26. PULMICORT TURBUHALER [Concomitant]
     Active Substance: BUDESONIDE
     Dosage: UNK
     Route: 055
     Dates: start: 20200424, end: 20200427
  27. UPTRAVI [Concomitant]
     Active Substance: SELEXIPAG
     Indication: PULMONARY ARTERIAL HYPERTENSION
     Dosage: 200 MCG, QD
     Route: 048
     Dates: start: 20200308, end: 20200322
  28. MACPERAN [Concomitant]
     Active Substance: METOCLOPRAMIDE HYDROCHLORIDE
     Dosage: 1 ML, QD
     Route: 042
     Dates: start: 20200417, end: 20200419
  29. DUPHALAC EASY [Concomitant]
     Active Substance: LACTULOSE
     Dosage: 3 DF, QD
     Route: 048
     Dates: start: 20200429, end: 20200502
  30. ALDACTONE [Concomitant]
     Active Substance: SPIRONOLACTONE
     Dosage: 12.5 MG, QD
     Route: 048
     Dates: start: 20200327, end: 20200329
  31. AMBROXOL [Concomitant]
     Active Substance: AMBROXOL
  32. UPTRAVI [Concomitant]
     Active Substance: SELEXIPAG
     Indication: HEART DISEASE CONGENITAL
     Dosage: 400 MCG, QD
     Route: 048
     Dates: start: 20200323, end: 20200323
  33. LASIX [Concomitant]
     Active Substance: FUROSEMIDE
     Dosage: 2 DF, QD
     Route: 048
     Dates: start: 20200330
  34. LASIX [Concomitant]
     Active Substance: FUROSEMIDE
     Dosage: 2 DF, QD
     Route: 048
     Dates: start: 20200502, end: 20200609
  35. REMODULIN [Concomitant]
     Active Substance: TREPROSTINIL
     Dosage: 2.0 NG/KG, PER MIN
     Route: 058
     Dates: start: 20200418, end: 20200520
  36. SUSPEN ER [Concomitant]
     Dosage: 1950 MG, QD
     Dates: start: 20200521
  37. LANSTON [Concomitant]
     Active Substance: LANSOPRAZOLE
     Indication: PROPHYLAXIS
     Dosage: 30 MG, QD
     Route: 048
     Dates: start: 20111216
  38. LIXIANA [Concomitant]
     Active Substance: EDOXABAN TOSYLATE
     Dosage: 30 MG, QD
     Route: 048
     Dates: start: 20200229, end: 20200609
  39. ZEMIMET [Concomitant]
     Dosage: 1 DF, QD
     Route: 048
     Dates: start: 20200313, end: 20200318
  40. K?CONTIN CONTINUS [Concomitant]
     Dosage: 1800 MG, QD
     Route: 048
     Dates: start: 20200327, end: 20200327
  41. ALMAGEL?F [Concomitant]
     Dosage: 1 DF, QD
     Route: 048
     Dates: start: 20200324, end: 20200324
  42. PAHTENSION [Concomitant]
     Active Substance: SILDENAFIL CITRATE
     Indication: PULMONARY ARTERIAL HYPERTENSION
     Dosage: 60 MG, QD
     Route: 048
     Dates: start: 20150225
  43. FEROBA U [Concomitant]
     Active Substance: FERROUS SULFATE
     Dosage: 1 DF, QD
     Dates: start: 20191129, end: 20200609
  44. DUPHALAC EASY [Concomitant]
     Active Substance: LACTULOSE
     Indication: PROPHYLAXIS
     Dosage: 45 ML, QD
     Route: 048
     Dates: start: 20200308, end: 20200322
  45. COLCHICINE. [Concomitant]
     Active Substance: COLCHICINE
     Dosage: 1 DF, QD
     Route: 048
     Dates: start: 20200323, end: 20200407
  46. MUCOMYST [Concomitant]
     Active Substance: ACETYLCYSTEINE

REACTIONS (12)
  - Abdominal discomfort [Recovered/Resolved]
  - Cardiac failure [Fatal]
  - Face oedema [Fatal]
  - Abdominal distension [Recovered/Resolved]
  - Acute kidney injury [Fatal]
  - Gait disturbance [Fatal]
  - Right-to-left cardiac shunt [Fatal]
  - Nausea [Recovered/Resolved]
  - Haematochezia [Recovered/Resolved]
  - Oedema peripheral [Fatal]
  - Vomiting [Recovered/Resolved]
  - Haematuria [Recovered/Resolved]

NARRATIVE: CASE EVENT DATE: 20200318
